FAERS Safety Report 9029830 (Version 1)
Quarter: 2013Q1

REPORT INFORMATION
  Report Type: Spontaneous
  Country: US (occurrence: US)
  Receive Date: 20130124
  Receipt Date: 20130124
  Transmission Date: 20140127
  Serious: Yes (Other)
  Sender: FDA-Public Use
  Company Number: CHPA2013US001483

PATIENT
  Age: 66 Year
  Sex: Female

DRUGS (1)
  1. EXCEDRIN MIGRAINE [Suspect]
     Indication: MIGRAINE
     Dosage: 1 DF, PRN
     Route: 048

REACTIONS (3)
  - Calcinosis [Not Recovered/Not Resolved]
  - Sciatica [Not Recovered/Not Resolved]
  - Incorrect dose administered [Unknown]
